FAERS Safety Report 25436835 (Version 2)
Quarter: 2025Q3

REPORT INFORMATION
  Report Type: Report from Study
  Country: US (occurrence: US)
  Receive Date: 20250615
  Receipt Date: 20250729
  Transmission Date: 20251020
  Serious: No
  Sender: MERCK SHARP & DOHME LLC
  Company Number: US-009507513-2292646

PATIENT
  Age: 14 Year
  Sex: Male

DRUGS (11)
  1. WINREVAIR [Suspect]
     Active Substance: SOTATERCEPT-CSRK
     Indication: Product used for unknown indication
     Route: 065
  2. WINREVAIR [Suspect]
     Active Substance: SOTATERCEPT-CSRK
  3. WINREVAIR [Suspect]
     Active Substance: SOTATERCEPT-CSRK
  4. WINREVAIR [Suspect]
     Active Substance: SOTATERCEPT-CSRK
  5. WINREVAIR [Suspect]
     Active Substance: SOTATERCEPT-CSRK
     Indication: Pulmonary arterial hypertension
     Dosage: ^0.9 ML^ / ^EVERY 3 WEEKS^
     Route: 050
     Dates: start: 202411
  6. WINREVAIR [Suspect]
     Active Substance: SOTATERCEPT-CSRK
  7. WINREVAIR [Suspect]
     Active Substance: SOTATERCEPT-CSRK
  8. WINREVAIR [Suspect]
     Active Substance: SOTATERCEPT-CSRK
  9. TYVASO DPI [Suspect]
     Active Substance: TREPROSTINIL
     Indication: Pulmonary arterial hypertension
     Dosage: 80 UG (64 UG+16 UG),  QID
     Route: 055
     Dates: start: 202305
  10. TADALAFIL [Concomitant]
     Active Substance: TADALAFIL
  11. AMBRISENTAN [Concomitant]
     Active Substance: AMBRISENTAN

REACTIONS (7)
  - Alopecia [Unknown]
  - Device leakage [Unknown]
  - Device issue [Unknown]
  - Product administered to patient of inappropriate age [Unknown]
  - Product preparation issue [Unknown]
  - Haemoglobin increased [Unknown]
  - Device physical property issue [Unknown]

NARRATIVE: CASE EVENT DATE: 20241101
